FAERS Safety Report 26180595 (Version 1)
Quarter: 2025Q4

REPORT INFORMATION
  Report Type: Spontaneous
  Country: US (occurrence: US)
  Receive Date: 20251219
  Receipt Date: 20251219
  Transmission Date: 20260117
  Serious: No
  Sender: ROCHE
  Company Number: US-ROCHE-10000460056

PATIENT
  Sex: Female

DRUGS (1)
  1. XOLAIR [Suspect]
     Active Substance: OMALIZUMAB
     Indication: Dermatitis atopic
     Dosage: STREANGHT: 300 MG/2ML
     Route: 058
     Dates: start: 202505

REACTIONS (3)
  - Nasal congestion [Unknown]
  - Product use in unapproved indication [Unknown]
  - Hypersensitivity [Unknown]
